FAERS Safety Report 5182643-3 (Version None)
Quarter: 2006Q4

REPORT INFORMATION
  Report Type: 
  Country: None (occurrence: None)
  Receive Date: 20061212
  Receipt Date: 20061130
  Transmission Date: 20070319
  Serious: Yes (Other)
  Sender: FDA-Public Use
  Company Number: 233291

PATIENT
  Age: 72 Year
  Sex: Female

DRUGS (2)
  1. HERCEPTIN [Suspect]
     Indication: BREAST CANCER METASTATIC
     Dosage: 2 MG/KG, 1/WEEK, INTRAVENOUS; 1/MONTH, INTRAVENOUS
     Route: 042
     Dates: start: 20040101, end: 20050101
  2. HERCEPTIN [Suspect]
     Indication: BREAST CANCER METASTATIC
     Dosage: 2 MG/KG, 1/WEEK, INTRAVENOUS; 1/MONTH, INTRAVENOUS
     Route: 042
     Dates: start: 20060201, end: 20060501

REACTIONS (2)
  - CORONARY ARTERY OCCLUSION [None]
  - DISEASE PROGRESSION [None]
